FAERS Safety Report 15565322 (Version 1)
Quarter: 2018Q4

REPORT INFORMATION
  Report Type: Spontaneous
  Country: US (occurrence: US)
  Receive Date: 20181030
  Receipt Date: 20181030
  Transmission Date: 20190205
  Serious: Yes (Other)
  Sender: FDA-Public Use
  Company Number: US-SAREPTA THERAPEUTICS, INC-SRP-000173-2018

PATIENT
  Age: 14 Year
  Sex: Male

DRUGS (1)
  1. EXONDYS 51 [Suspect]
     Active Substance: ETEPLIRSEN
     Indication: PRODUCT USED FOR UNKNOWN INDICATION
     Dosage: UNK
     Route: 065

REACTIONS (4)
  - Fall [Unknown]
  - Ligament sprain [Unknown]
  - Fibula fracture [Unknown]
  - Tibia fracture [Unknown]

NARRATIVE: CASE EVENT DATE: 20181013
